FAERS Safety Report 10023536 (Version 1)
Quarter: 2014Q1

REPORT INFORMATION
  Report Type: Spontaneous
  Country: US (occurrence: None)
  Receive Date: 20140103
  Receipt Date: 20140103
  Transmission Date: 20141002
  Serious: Yes (Other)
  Sender: FDA-Public Use
  Company Number: 2010S1000565

PATIENT
  Sex: Female
  Weight: 65.77 kg

DRUGS (2)
  1. FLEET PHOSPHO-SODA ORAL SALINE LAXATIVE, GINGER-LEMON FLAVOR (ORAL SOLUTION) [Suspect]
     Indication: COLONOSCOPY
     Route: 048
  2. FUROSEMIDE (FUROSEMIDE) [Concomitant]

REACTIONS (1)
  - Renal failure chronic [None]
